FAERS Safety Report 16084375 (Version 2)
Quarter: 2019Q2

REPORT INFORMATION
  Report Type: Spontaneous
  Country: GB (occurrence: GB)
  Receive Date: 20190318
  Receipt Date: 20190619
  Transmission Date: 20190711
  Serious: Yes (Hospitalization)
  Sender: FDA-Public Use
  Company Number: GB-AMREGENT-20190431

PATIENT
  Age: 17 Year
  Sex: Female
  Weight: 69.05 kg

DRUGS (6)
  1. FERINJECT [Suspect]
     Active Substance: FERRIC CARBOXYMALTOSE
     Dosage: 1000 MG
     Route: 041
     Dates: start: 20181029
  2. BUDENOFALK [Concomitant]
     Active Substance: BUDESONIDE
     Dosage: 2 MG, AT NIGHT
     Route: 065
  3. METHYLPREDNISOLONE. [Concomitant]
     Active Substance: METHYLPREDNISOLONE
     Dosage: 60 MG
     Route: 042
  4. PREDNISOLONE. [Concomitant]
     Active Substance: PREDNISOLONE
     Dosage: 5 MG,1 IN 1 D
     Route: 048
  5. OMEPRAZOLE. [Concomitant]
     Active Substance: OMEPRAZOLE
     Dosage: 40 MG (20 MG,2 IN 1 D)
     Route: 065
  6. MUTROFLOR [Concomitant]
     Dosage: 2 DOSAGE FORMS,AT NIGHT
     Route: 065

REACTIONS (3)
  - Abdominal symptom [Unknown]
  - Blood phosphorus decreased [Recovered/Resolved]
  - Colitis ulcerative [Unknown]

NARRATIVE: CASE EVENT DATE: 201812
